FAERS Safety Report 8968054 (Version 4)
Quarter: 2016Q2

REPORT INFORMATION
  Report Type: Report from Study
  Country: JP (occurrence: JP)
  Receive Date: 20121218
  Receipt Date: 20160412
  Transmission Date: 20160815
  Serious: Yes (Hospitalization)
  Sender: FDA-Public Use
  Company Number: JP-JNJFOC-20121206889

PATIENT
  Age: 44 Year
  Sex: Male
  Weight: 53 kg

DRUGS (8)
  1. PRAVASTATIN [Concomitant]
     Active Substance: PRAVASTATIN\PRAVASTATIN SODIUM
     Route: 048
  2. MUCOSTA [Concomitant]
     Active Substance: REBAMIPIDE
     Route: 065
  3. DERMOVATE [Concomitant]
     Active Substance: CLOBETASOL
     Route: 065
  4. LORFENAMIN [Concomitant]
     Active Substance: LOXOPROFEN
     Route: 048
  5. LOXONIN [Concomitant]
     Active Substance: LOXOPROFEN SODIUM
     Route: 061
  6. ETRETINATE [Concomitant]
     Active Substance: ETRETINATE
     Dates: start: 20091211, end: 20121210
  7. STELARA [Suspect]
     Active Substance: USTEKINUMAB
     Indication: PSORIATIC ARTHROPATHY
     Route: 058
     Dates: start: 20120501, end: 20120521
  8. OXAROL [Concomitant]
     Active Substance: MAXACALCITOL
     Route: 065

REACTIONS (2)
  - Disseminated intravascular coagulation [Recovering/Resolving]
  - Acute myeloid leukaemia [Recovered/Resolved]

NARRATIVE: CASE EVENT DATE: 20120521
